FAERS Safety Report 24713204 (Version 1)
Quarter: 2024Q4

REPORT INFORMATION
  Report Type: Spontaneous
  Country: US (occurrence: US)
  Receive Date: 20241209
  Receipt Date: 20241209
  Transmission Date: 20250115
  Serious: Yes (Other)
  Sender: REGENERON
  Company Number: US-REGENERON PHARMACEUTICALS, INC.-2023-148311

PATIENT
  Sex: Male

DRUGS (1)
  1. EYLEA [Suspect]
     Active Substance: AFLIBERCEPT
     Indication: Central vision loss
     Dosage: 2 MG, Q8W (EVERY 8 WEEKS); FORMULATION: UNKNOWN

REACTIONS (2)
  - Cerebrovascular accident [Unknown]
  - Off label use [Not Recovered/Not Resolved]
